FAERS Safety Report 8017720-2 (Version None)
Quarter: 2012Q1

REPORT INFORMATION
  Report Type: 
  Country: None (occurrence: None)
  Receive Date: 20120103
  Receipt Date: 20111227
  Transmission Date: 20120608
  Serious: No
  Sender: FDA-Public Use
  Company Number: US-PFIZER INC-2011278564

PATIENT
  Sex: Male

DRUGS (1)
  1. TESTOSTERONE CYPIONATE [Suspect]
     Dosage: 200 MG/ML, EVERY 3 MONTHS
     Route: 030

REACTIONS (2)
  - INJECTION SITE PAIN [None]
  - MYALGIA [None]
